FAERS Safety Report 4818653-2 (Version None)
Quarter: 2005Q4

REPORT INFORMATION
  Report Type: 
  Country: None (occurrence: None)
  Receive Date: 20051101
  Receipt Date: 20051018
  Transmission Date: 20060501
  Serious: Yes (Hospitalization)
  Sender: FDA-Public Use
  Company Number: 2005P1000479

PATIENT
  Age: 70 Year
  Sex: Female
  Weight: 62.5964 kg

DRUGS (2)
  1. SECTRAL [Suspect]
     Indication: SUPRAVENTRICULAR TACHYCARDIA
     Dosage: 200 MG; QD; ORO
     Route: 049
     Dates: start: 20050201
  2. ACIPHEX [Concomitant]

REACTIONS (4)
  - BRADYCARDIA [None]
  - DYSPEPSIA [None]
  - HYPOTENSION [None]
  - SICK SINUS SYNDROME [None]
